FAERS Safety Report 5813141-9 (Version None)
Quarter: 2008Q3

REPORT INFORMATION
  Report Type: 
  Country: None (occurrence: None)
  Receive Date: 20080717
  Receipt Date: 20080220
  Transmission Date: 20090109
  Serious: No
  Sender: FDA-Public Use
  Company Number: A0710639A

PATIENT
  Age: 59 Year
  Sex: Male

DRUGS (1)
  1. NICORETTE [Suspect]

REACTIONS (7)
  - BLOOD PRESSURE INCREASED [None]
  - GLOSSODYNIA [None]
  - HYPERHIDROSIS [None]
  - INTENTIONAL DRUG MISUSE [None]
  - PARAESTHESIA ORAL [None]
  - RESPIRATORY RATE INCREASED [None]
  - THERMAL BURN [None]
